FAERS Safety Report 8802262 (Version 2)
Quarter: 2012Q4

REPORT INFORMATION
  Report Type: 
  Country: US (occurrence: US)
  Receive Date: 20120921
  Receipt Date: 20121008
  Transmission Date: 20130627
  Serious: No
  Sender: FDA-Public Use
  Company Number: US-B.I. PHARMACEUTICALS,INC./RIDGEFIELD-2012-BP-23023BP

PATIENT
  Age: 69 Year
  Sex: Female
  Weight: 55 kg

DRUGS (3)
  1. SPIRIVA [Suspect]
     Indication: CHRONIC OBSTRUCTIVE PULMONARY DISEASE
     Dosage: 18 mcg
     Route: 055
     Dates: start: 20120902
  2. ADVAIR [Concomitant]
     Indication: ASTHMA
     Route: 055
     Dates: start: 2002
  3. PROAIR [Concomitant]
     Indication: ASTHMA
     Route: 055
     Dates: start: 2002

REACTIONS (4)
  - Product quality issue [Unknown]
  - Dyspnoea [Recovered/Resolved]
  - Chest discomfort [Recovered/Resolved]
  - Product quality issue [Unknown]
